APPROVED DRUG PRODUCT: AGRYLIN
Active Ingredient: ANAGRELIDE HYDROCHLORIDE
Strength: EQ 0.5MG BASE
Dosage Form/Route: CAPSULE;ORAL
Application: N020333 | Product #001 | TE Code: AB
Applicant: TAKEDA PHARMACEUTICALS USA INC
Approved: Mar 14, 1997 | RLD: No | RS: No | Type: RX